FAERS Safety Report 7031515-8 (Version None)
Quarter: 2010Q4

REPORT INFORMATION
  Report Type: 
  Country: None (occurrence: None)
  Receive Date: 20101006
  Receipt Date: 20101006
  Transmission Date: 20110411
  Serious: Yes (Other)
  Sender: FDA-Public Use
  Company Number: None

PATIENT
  Age: 30 Year
  Sex: Female
  Weight: 58.9676 kg

DRUGS (2)
  1. TRAZODONE HCL [Suspect]
     Indication: POST-TRAUMATIC STRESS DISORDER
     Dosage: 1/2 TAB TWICE A DAY PO; 2 TABS BEDTIME PO
     Route: 048
     Dates: start: 20100607, end: 20100912
  2. TRAZODONE HCL [Suspect]
     Indication: SLEEP DISORDER
     Dosage: 1/2 TAB TWICE A DAY PO; 2 TABS BEDTIME PO
     Route: 048
     Dates: start: 20100607, end: 20100912

REACTIONS (12)
  - ARTHRALGIA [None]
  - CONFUSIONAL STATE [None]
  - DECREASED APPETITE [None]
  - DIPLOPIA [None]
  - GRAND MAL CONVULSION [None]
  - HEADACHE [None]
  - INFLUENZA LIKE ILLNESS [None]
  - NASOPHARYNGITIS [None]
  - PRODUCT TASTE ABNORMAL [None]
  - TREMOR [None]
  - VISION BLURRED [None]
  - VISUAL IMPAIRMENT [None]
